FAERS Safety Report 17214055 (Version 9)
Quarter: 2020Q3

REPORT INFORMATION
  Report Type: Spontaneous
  Country: US (occurrence: US)
  Receive Date: 20191230
  Receipt Date: 20200902
  Transmission Date: 20201102
  Serious: Yes (Other)
  Sender: FDA-Public Use
  Company Number: US-PFIZER INC-2017125438

PATIENT
  Age: 69 Year
  Sex: Male

DRUGS (2)
  1. BENEFIX [Suspect]
     Active Substance: COAGULATION FACTOR IX RECOMBINANT HUMAN\ISOPROPYL ALCOHOL
     Dosage: 7663 UNITS +/? 10% PIV, AS NEEDED FOR BLEEDING
  2. BENEFIX [Suspect]
     Active Substance: COAGULATION FACTOR IX RECOMBINANT HUMAN\ISOPROPYL ALCOHOL
     Indication: HAEMORRHAGE
     Dosage: 15321 IU, MONTHLY (7663 U (+/1000) IU/ BLEEDING

REACTIONS (4)
  - Haemorrhage [Unknown]
  - Intentional product misuse [Unknown]
  - Injury [Unknown]
  - Ligament sprain [Unknown]
